FAERS Safety Report 20385809 (Version 1)
Quarter: 2022Q1

REPORT INFORMATION
  Report Type: Spontaneous
  Country: US (occurrence: US)
  Receive Date: 20220127
  Receipt Date: 20220127
  Transmission Date: 20220423
  Serious: No
  Sender: FDA-Public Use
  Company Number: US-ALLERGAN-2126025US

PATIENT
  Age: 35 Year
  Sex: Female

DRUGS (3)
  1. BOTOX COSMETIC [Suspect]
     Active Substance: ONABOTULINUMTOXINA
     Indication: Skin wrinkling
     Dosage: 35 UNITS, SINGLE
     Dates: start: 20210510, end: 20210510
  2. BOTOX COSMETIC [Suspect]
     Active Substance: ONABOTULINUMTOXINA
     Indication: Skin wrinkling
     Dosage: 7 UNITS, SINGLE
     Dates: start: 20210510, end: 20210510
  3. BOTOX COSMETIC [Suspect]
     Active Substance: ONABOTULINUMTOXINA
     Indication: Skin wrinkling
     Dosage: 14 UNITS, SINGLE
     Dates: start: 20210510, end: 20210510

REACTIONS (1)
  - Therapeutic product effect increased [Unknown]

NARRATIVE: CASE EVENT DATE: 20210514
